FAERS Safety Report 16248718 (Version 1)
Quarter: 2019Q2

REPORT INFORMATION
  Report Type: Spontaneous
  Country: US (occurrence: US)
  Receive Date: 20190429
  Receipt Date: 20190429
  Transmission Date: 20190711
  Serious: No
  Sender: FDA-Public Use
  Company Number: US-BRISTOL-MYERS SQUIBB COMPANY-BMS-2019-041423

PATIENT
  Age: 61 Year
  Sex: Female
  Weight: 82.09 kg

DRUGS (1)
  1. ORENCIA [Suspect]
     Active Substance: ABATACEPT
     Indication: RHEUMATOID ARTHRITIS
     Dosage: 125 MILLIGRAM, QWK
     Route: 058
     Dates: start: 201812

REACTIONS (5)
  - Pain [Unknown]
  - Blood glucose abnormal [Unknown]
  - Headache [Unknown]
  - Nodule [Unknown]
  - Malaise [Unknown]

NARRATIVE: CASE EVENT DATE: 20190423
